FAERS Safety Report 8311218-X (Version None)
Quarter: 2012Q2

REPORT INFORMATION
  Report Type: 
  Country: None (occurrence: None)
  Receive Date: 20120425
  Receipt Date: 20120417
  Transmission Date: 20120825
  Serious: Yes (Other)
  Sender: FDA-Public Use
  Company Number: US-ASTRAZENECA-2010SE16209

PATIENT
  Age: 57 Year
  Sex: Male

DRUGS (5)
  1. MASPAN [Concomitant]
  2. ASPIRIN [Concomitant]
  3. NIASPAN [Concomitant]
  4. CRESTOR [Suspect]
     Indication: HYPERCHOLESTEROLAEMIA
     Route: 048
     Dates: start: 20050101
  5. ATENOLOL [Concomitant]

REACTIONS (3)
  - ONCOLOGIC COMPLICATION [None]
  - GAIT DISTURBANCE [None]
  - COLORECTAL CANCER [None]
